FAERS Safety Report 11017232 (Version 2)
Quarter: 2015Q2

REPORT INFORMATION
  Report Type: Spontaneous
  Country: US (occurrence: US)
  Receive Date: 20150412
  Receipt Date: 20150525
  Transmission Date: 20150821
  Serious: No
  Sender: FDA-Public Use
  Company Number: US-JNJFOC-20111200939

PATIENT
  Sex: Female
  Weight: 63.05 kg

DRUGS (1)
  1. ORTHO EVRA [Suspect]
     Active Substance: ETHINYL ESTRADIOL\NORELGESTROMIN
     Indication: CONTRACEPTION
     Dosage: 1 PATCH
     Route: 062
     Dates: start: 2003

REACTIONS (9)
  - Vaginal haemorrhage [Not Recovered/Not Resolved]
  - Asthenia [Recovered/Resolved]
  - Anxiety [Not Recovered/Not Resolved]
  - Product adhesion issue [Unknown]
  - Drug administered at inappropriate site [Not Recovered/Not Resolved]
  - Fatigue [Recovered/Resolved]
  - Metrorrhagia [Unknown]
  - Application site pain [Not Recovered/Not Resolved]
  - Uterine spasm [Not Recovered/Not Resolved]

NARRATIVE: CASE EVENT DATE: 2003
